FAERS Safety Report 6141296-8 (Version None)
Quarter: 2009Q1

REPORT INFORMATION
  Report Type: 
  Country: None (occurrence: None)
  Receive Date: 20090331
  Receipt Date: 20090331
  Transmission Date: 20090719
  Serious: Yes (Disabling, Other)
  Sender: FDA-Public Use
  Company Number: None

PATIENT
  Age: 5 Year
  Sex: Male
  Weight: 20.4119 kg

DRUGS (2)
  1. SINGULAIR [Suspect]
     Indication: ASTHMA
     Dosage: DAILY 1X
     Dates: start: 20020115, end: 20021225
  2. SINGULAIR [Suspect]
     Indication: MIGRAINE
     Dosage: DAILY 1X
     Dates: start: 20020115, end: 20021225

REACTIONS (5)
  - DEPRESSION [None]
  - FEELING ABNORMAL [None]
  - MORBID THOUGHTS [None]
  - NEGATIVISM [None]
  - PANIC REACTION [None]
